FAERS Safety Report 10507485 (Version 2)
Quarter: 2014Q4

REPORT INFORMATION
  Report Type: Report from Study
  Country: US (occurrence: US)
  Receive Date: 20141009
  Receipt Date: 20141031
  Transmission Date: 20150528
  Serious: Yes (Hospitalization, Other)
  Sender: FDA-Public Use
  Company Number: US-AMGEN-USASL2014077494

PATIENT
  Age: 49 Year
  Sex: Female
  Weight: 118.28 kg

DRUGS (11)
  1. ENBREL [Suspect]
     Active Substance: ETANERCEPT
     Indication: RHEUMATOID ARTHRITIS
     Dosage: 50 MG, QWK
     Route: 058
     Dates: start: 20070101, end: 201402
  2. BETAMETHASONE VALERATE. [Concomitant]
     Active Substance: BETAMETHASONE VALERATE
     Dosage: 0.1 %, UNK
     Route: 061
  3. FLONASE [Concomitant]
     Active Substance: FLUTICASONE PROPIONATE
     Dosage: 0.05 MG/INH 1 SPRAY, DAILY
  4. VOLTAREN [Concomitant]
     Active Substance: DICLOFENAC SODIUM
     Dosage: 75 MG, TABLET 2 TIMES A DAY
     Route: 048
  5. ARAVA [Concomitant]
     Active Substance: LEFLUNOMIDE
     Dosage: 10 MG, EVERY 24 HOURS
  6. ACETAMINOPHEN W/OXYCODONE [Concomitant]
     Active Substance: ACETAMINOPHEN\OXYCODONE HYDROCHLORIDE
     Dosage: 325MG-7.5MG, 1TAB PRN EVERY 4 HOURS
     Route: 048
  7. ULTRAM [Concomitant]
     Active Substance: TRAMADOL HYDROCHLORIDE
     Dosage: 50 MG, PRN EVERY 3 HOURS
     Route: 048
  8. PRAVASTATIN [Concomitant]
     Active Substance: PRAVASTATIN\PRAVASTATIN SODIUM
     Dosage: 40 MG, DAILY
     Route: 048
  9. SUPER B COMPLEX                    /06817001/ [Concomitant]
     Dosage: 1 TAB, DAILY
     Route: 048
  10. LISINOPRIL AND HYDROCHLOROTHIAZIDE [Concomitant]
     Active Substance: HYDROCHLOROTHIAZIDE\LISINOPRIL
     Dosage: 12.5 MG -10MG TABLET 1 TAB, DAILY
     Route: 048
  11. COENZYME Q10 [Concomitant]
     Active Substance: UBIDECARENONE
     Dosage: 100 MG, EVERY 24 HOURS

REACTIONS (31)
  - Pulmonary hypertension [Recovered/Resolved]
  - Muscular weakness [Unknown]
  - Arthralgia [Unknown]
  - Sjogren^s syndrome [Recovered/Resolved]
  - Impaired healing [Not Recovered/Not Resolved]
  - Anxiety [Unknown]
  - Somatoform disorder [Not Recovered/Not Resolved]
  - Gastroenteritis [Recovered/Resolved]
  - Rotator cuff syndrome [Recovered/Resolved]
  - Tendon rupture [Recovered/Resolved]
  - Hypertension [Not Recovered/Not Resolved]
  - Sleep disorder [Unknown]
  - Skin ulcer [Not Recovered/Not Resolved]
  - Cyst removal [Unknown]
  - Exostosis [Recovered/Resolved]
  - Fasciitis [Recovered/Resolved]
  - Otitis media [Recovered/Resolved]
  - Anaemia [Recovered/Resolved]
  - Metatarsalgia [Recovered/Resolved]
  - Fatigue [Unknown]
  - Tendon operation [Recovered/Resolved]
  - Hypercholesterolaemia [Not Recovered/Not Resolved]
  - Lichen planus [Not Recovered/Not Resolved]
  - Pain [Unknown]
  - Sinusitis [Not Recovered/Not Resolved]
  - Debridement [Unknown]
  - Sinus disorder [Unknown]
  - Gastric disorder [Unknown]
  - Cardiac murmur [Not Recovered/Not Resolved]
  - Incisional drainage [Unknown]
  - Oedema peripheral [Not Recovered/Not Resolved]

NARRATIVE: CASE EVENT DATE: 20091111
